FAERS Safety Report 4997167-3 (Version None)
Quarter: 2006Q2

REPORT INFORMATION
  Report Type: 
  Country: None (occurrence: None)
  Receive Date: 20060509
  Receipt Date: 20060427
  Transmission Date: 20061013
  Serious: Yes (Hospitalization)
  Sender: FDA-Public Use
  Company Number: FR-NOVOPROD-252958

PATIENT
  Age: 70 Year
  Sex: Female

DRUGS (7)
  1. NORDITROPIN SIMPLEXX [Suspect]
     Indication: GROWTH HORMONE DEFICIENCY
     Dates: start: 19980501
  2. HYDROCORTISONE [Concomitant]
     Dosage: 25 MG, UNK
     Route: 048
     Dates: start: 19860601
  3. LEVOTHYROX [Concomitant]
     Dosage: 75 UG, QD
     Route: 048
     Dates: start: 19910601
  4. PRAVASTATIN [Concomitant]
     Dosage: 40 MG, QD
     Dates: start: 20050118
  5. PLAVIX                             /01220701/ [Concomitant]
     Dosage: 75 MG, QD
     Route: 048
     Dates: start: 20010101
  6. DIDRONEL                           /00553202/ [Concomitant]
     Dates: start: 20000101
  7. OSTRAM [Concomitant]
     Dosage: UNK, UNK
     Dates: start: 20000101

REACTIONS (1)
  - HAEMOPTYSIS [None]
